FAERS Safety Report 19181879 (Version 1)
Quarter: 2021Q2

REPORT INFORMATION
  Report Type: Report from Study
  Country: MX (occurrence: MX)
  Receive Date: 20210426
  Receipt Date: 20210426
  Transmission Date: 20210717
  Serious: Yes (Other)
  Sender: FDA-Public Use
  Company Number: NVSC2021MX019972

PATIENT
  Sex: Female
  Weight: 48 kg

DRUGS (2)
  1. NEXUS [Concomitant]
     Indication: HYPERTENSION
     Dosage: 5 MG, BID
     Route: 048
     Dates: start: 20200520
  2. DIOVAN [Suspect]
     Active Substance: VALSARTAN
     Indication: HYPERTENSION
     Dosage: 80 MG, BID (APPROXIMAT 7 MONTHS AGO)
     Route: 048
     Dates: start: 20200520

REACTIONS (3)
  - Fall [Unknown]
  - Off label use [Unknown]
  - Inappropriate schedule of product administration [Unknown]
